FAERS Safety Report 5293085-4 (Version None)
Quarter: 2007Q2

REPORT INFORMATION
  Report Type: 
  Country: None (occurrence: None)
  Receive Date: 20070404
  Receipt Date: 20070329
  Transmission Date: 20071010
  Serious: Yes (Death)
  Sender: FDA-Public Use
  Company Number: 2007-156543-NL

PATIENT
  Sex: Female

DRUGS (3)
  1. MIRTAZAPINE [Suspect]
     Dosage: DF
  2. DIAZEPAM [Suspect]
     Dosage: DF
  3. ZOPICLONE [Suspect]
     Dosage: DF

REACTIONS (1)
  - MULTIPLE DRUG OVERDOSE [None]
